FAERS Safety Report 12385989 (Version 1)
Quarter: 2016Q2

REPORT INFORMATION
  Report Type: Spontaneous
  Country: US (occurrence: US)
  Receive Date: 20160519
  Receipt Date: 20160519
  Transmission Date: 20160815
  Serious: No
  Sender: FDA-Public Use
  Company Number: US-ENDO PHARMACEUTICALS INC.-2015-002427

PATIENT
  Sex: Female

DRUGS (2)
  1. LORAZEPAM TABLETS 2MG [Suspect]
     Active Substance: LORAZEPAM
     Indication: MENIERE^S DISEASE
  2. LORAZEPAM TABLETS 2MG [Suspect]
     Active Substance: LORAZEPAM
     Indication: PANIC ATTACK
     Route: 065

REACTIONS (3)
  - Off label use [Unknown]
  - Drug ineffective [Unknown]
  - Wrong technique in product usage process [Unknown]
